FAERS Safety Report 6839502-7 (Version None)
Quarter: 2010Q3

REPORT INFORMATION
  Report Type: 
  Country: None (occurrence: None)
  Receive Date: 20100714
  Receipt Date: 20100114
  Transmission Date: 20110219
  Serious: No
  Sender: FDA-Public Use
  Company Number: A0810759A

PATIENT
  Age: 61 Year
  Sex: Female

DRUGS (4)
  1. FLOVENT [Suspect]
     Indication: ASTHMA
     Dosage: 2PUFF TWICE PER DAY
     Route: 055
     Dates: start: 19970101
  2. SYNTHROID [Concomitant]
  3. SINGULAIR [Concomitant]
  4. ALLERGY MEDICATION [Concomitant]

REACTIONS (2)
  - DYSPHONIA [None]
  - PRODUCT QUALITY ISSUE [None]
